FAERS Safety Report 4526691-2 (Version None)
Quarter: 2004Q4

REPORT INFORMATION
  Report Type: 
  Country: None (occurrence: None)
  Receive Date: 20041213
  Receipt Date: 20041116
  Transmission Date: 20050328
  Serious: Yes (Disabling)
  Sender: FDA-Public Use
  Company Number: 2004224722US

PATIENT
  Age: 60 Year
  Sex: Female
  Weight: 63.5036 kg

DRUGS (1)
  1. BEXTRA [Suspect]
     Indication: LOCALISED OSTEOARTHRITIS
     Dosage: 10 MG (10 MG, QD), ORAL
     Route: 048
     Dates: start: 20040101, end: 20040708

REACTIONS (2)
  - EPISTAXIS [None]
  - RETINAL HAEMORRHAGE [None]
